FAERS Safety Report 16969478 (Version 1)
Quarter: 2019Q4

REPORT INFORMATION
  Report Type: Spontaneous
  Country: PT (occurrence: PT)
  Receive Date: 20191029
  Receipt Date: 20191029
  Transmission Date: 20200122
  Serious: Yes (Hospitalization, Other)
  Sender: FDA-Public Use
  Company Number: PT-MYLANLABS-2019M1101473

PATIENT
  Age: 69 Year
  Sex: Female

DRUGS (2)
  1. IBUPROFEN. [Suspect]
     Active Substance: IBUPROFEN
     Indication: ODYNOPHAGIA
     Dosage: DOSE UNICA
     Route: 048
     Dates: start: 20180714, end: 20180714
  2. PARACETAMOL [Suspect]
     Active Substance: ACETAMINOPHEN
     Indication: ODYNOPHAGIA
     Dosage: DOSE UNICA
     Route: 048
     Dates: start: 20180714, end: 20180714

REACTIONS (2)
  - Cutaneous vasculitis [Recovered/Resolved]
  - Renal vasculitis [Recovered/Resolved]

NARRATIVE: CASE EVENT DATE: 20180719
